FAERS Safety Report 25352512 (Version 1)
Quarter: 2025Q2

REPORT INFORMATION
  Report Type: Spontaneous
  Country: FR (occurrence: FR)
  Receive Date: 20250523
  Receipt Date: 20250523
  Transmission Date: 20250716
  Serious: Yes (Other)
  Sender: MYLAN
  Company Number: None

PATIENT
  Age: 40 Year
  Sex: Male

DRUGS (4)
  1. PREGABALIN [Suspect]
     Active Substance: PREGABALIN
     Indication: Product used for unknown indication
     Dosage: APPROXIMATELY 900 MG PER DAY
     Dates: start: 202401
  2. PREGABALIN [Suspect]
     Active Substance: PREGABALIN
     Dosage: APPROXIMATELY 900 MG PER DAY
     Route: 048
     Dates: start: 202401
  3. PREGABALIN [Suspect]
     Active Substance: PREGABALIN
     Dosage: APPROXIMATELY 900 MG PER DAY
     Route: 048
     Dates: start: 202401
  4. PREGABALIN [Suspect]
     Active Substance: PREGABALIN
     Dosage: APPROXIMATELY 900 MG PER DAY
     Dates: start: 202401

REACTIONS (1)
  - Drug use disorder [Not Recovered/Not Resolved]
